FAERS Safety Report 10077136 (Version 1)
Quarter: 2014Q2

REPORT INFORMATION
  Report Type: Spontaneous
  Country: CH (occurrence: CH)
  Receive Date: 20140414
  Receipt Date: 20140414
  Transmission Date: 20141212
  Serious: Yes (Other)
  Sender: FDA-Public Use
  Company Number: CH-ACTAVIS-2014-07137

PATIENT
  Age: 71 Year
  Sex: 0

DRUGS (1)
  1. ZOLEDRONIC ACID (UNKNOWN) [Suspect]
     Indication: PRODUCT USED FOR UNKNOWN INDICATION
     Dosage: 4 MG, EVERY 4-6 WEEKS
     Route: 042

REACTIONS (1)
  - Tooth infection [Recovered/Resolved]
